FAERS Safety Report 13205318 (Version 1)
Quarter: 2017Q1

REPORT INFORMATION
  Report Type: Spontaneous
  Country: US (occurrence: US)
  Receive Date: 20170209
  Receipt Date: 20170209
  Transmission Date: 20170428
  Serious: Yes (Other)
  Sender: FDA-Public Use
  Company Number: US-SAGENTPRD-2017-US-000022

PATIENT
  Age: 25 Year
  Sex: Male

DRUGS (2)
  1. EPHEDRINE. [Concomitant]
     Active Substance: EPHEDRINE
  2. CAFFEINE CITRATE ORAL SOLUTION [Suspect]
     Active Substance: CAFFEINE CITRATE

REACTIONS (3)
  - Myocardial necrosis [Unknown]
  - Substance abuse [Unknown]
  - Ventricular tachycardia [Unknown]
